FAERS Safety Report 7331763-3 (Version None)
Quarter: 2011Q1

REPORT INFORMATION
  Report Type: 
  Country: None (occurrence: None)
  Receive Date: 20110224
  Receipt Date: 20110215
  Transmission Date: 20110831
  Serious: Yes (Other)
  Sender: FDA-Public Use
  Company Number: 2011SP005716

PATIENT
  Age: 16 Year
  Sex: Female

DRUGS (2)
  1. NEXPLANON (ETONOGESTREL) [Suspect]
     Indication: PRODUCT USED FOR UNKNOWN INDICATION
     Dates: start: 20110202, end: 20110202
  2. XYLOCAINE [Suspect]
     Indication: SKIN IMPLANT
     Dates: start: 20110202

REACTIONS (4)
  - SURGICAL FAILURE [None]
  - SYNCOPE [None]
  - DISCOMFORT [None]
  - MUSCLE SPASMS [None]
